FAERS Safety Report 7521899-6 (Version None)
Quarter: 2011Q2

REPORT INFORMATION
  Report Type: 
  Country: None (occurrence: None)
  Receive Date: 20110603
  Receipt Date: 20110523
  Transmission Date: 20111010
  Serious: Yes (Disabling, Other)
  Sender: FDA-Public Use
  Company Number: US-CELGENEUS-163-21880-11043469

PATIENT
  Sex: Female

DRUGS (8)
  1. REVLIMID [Suspect]
     Indication: MULTIPLE MYELOMA
     Dosage: 25 MILLIGRAM
     Route: 048
     Dates: start: 20070401
  2. DECADRON [Concomitant]
     Route: 065
     Dates: end: 20090723
  3. REVLIMID [Suspect]
     Dosage: 10MG-25MG
     Route: 048
     Dates: start: 20090901
  4. REVLIMID [Suspect]
     Dosage: 10 MILLIGRAM
     Route: 048
     Dates: start: 20091101
  5. CALCIUM + MAGNESIUM [Concomitant]
     Route: 048
  6. VITAMIN D [Concomitant]
     Dosage: 1000 IU (INTERNATIONAL UNIT)
     Route: 048
  7. REVLIMID [Suspect]
     Dosage: 5MG-25MG
     Route: 048
     Dates: start: 20071201
  8. ATIVAN [Concomitant]
     Dosage: 1 MILLIGRAM
     Route: 065
     Dates: start: 20110224

REACTIONS (1)
  - OSTEOARTHRITIS [None]
